FAERS Safety Report 12941309 (Version 2)
Quarter: 2017Q1

REPORT INFORMATION
  Report Type: Report from Study
  Country: US (occurrence: US)
  Receive Date: 20161115
  Receipt Date: 20170111
  Transmission Date: 20170428
  Serious: Yes (Hospitalization, Other)
  Sender: FDA-Public Use
  Company Number: US-AMGEN-USASL2016157202

PATIENT
  Age: 80 Year
  Sex: Female

DRUGS (4)
  1. PROLIA [Suspect]
     Active Substance: DENOSUMAB
     Indication: PRODUCT USED FOR UNKNOWN INDICATION
     Dosage: UNK
     Route: 065
     Dates: start: 2010, end: 20161031
  2. CALCIUM [Concomitant]
     Active Substance: CALCIUM
     Dosage: 1200 MG, UNK
  3. VITAMIN D3 [Concomitant]
     Active Substance: CHOLECALCIFEROL
     Dosage: 500 IU, UNK
  4. SYNTHROID [Concomitant]
     Active Substance: LEVOTHYROXINE SODIUM

REACTIONS (20)
  - Infection [Unknown]
  - Fall [Unknown]
  - Injection site swelling [Unknown]
  - Confusional state [Unknown]
  - Abasia [Not Recovered/Not Resolved]
  - Incoherent [Unknown]
  - Blood electrolytes abnormal [Unknown]
  - Injection site infection [Recovering/Resolving]
  - Cystitis [Unknown]
  - Eczema [Unknown]
  - Gait disturbance [Recovered/Resolved]
  - Bone pain [Unknown]
  - Pelvic fracture [Unknown]
  - Vomiting [Recovered/Resolved]
  - Blood sodium abnormal [Unknown]
  - Incontinence [Not Recovered/Not Resolved]
  - Loss of consciousness [Unknown]
  - Femur fracture [Unknown]
  - Apparent death [Unknown]
  - Cerebrovascular accident [Unknown]

NARRATIVE: CASE EVENT DATE: 2014
